FAERS Safety Report 24706912 (Version 2)
Quarter: 2025Q1

REPORT INFORMATION
  Report Type: Spontaneous
  Country: US (occurrence: US)
  Receive Date: 20241206
  Receipt Date: 20250127
  Transmission Date: 20250409
  Serious: Yes (Other)
  Sender: BAYER HEALTHCARE PHARMACEUTICALS INC.
  Company Number: US-BAYER-2024A171723

PATIENT
  Age: 67 Year
  Sex: Male

DRUGS (3)
  1. NUBEQA [Suspect]
     Active Substance: DAROLUTAMIDE
     Indication: Hormone-dependent prostate cancer
  2. LUPRON [Suspect]
     Active Substance: LEUPROLIDE ACETATE
  3. DOCETAXEL [Suspect]
     Active Substance: DOCETAXEL

REACTIONS (4)
  - Metastases to bone [None]
  - Metastases to spine [None]
  - Fatigue [Recovering/Resolving]
  - Malaise [Recovering/Resolving]
